FAERS Safety Report 12037726 (Version 1)
Quarter: 2016Q1

REPORT INFORMATION
  Report Type: Spontaneous
  Country: None (occurrence: None)
  Receive Date: 20160205
  Receipt Date: 20160205
  Transmission Date: 20160526
  Serious: No
  Sender: FDA-Public Use
  Company Number: None

PATIENT
  Age: 44 Year
  Sex: Female

DRUGS (2)
  1. GLIPIZIDE. [Suspect]
     Active Substance: GLIPIZIDE
  2. METFORMIN [Suspect]
     Active Substance: METFORMIN HYDROCHLORIDE

REACTIONS (10)
  - Foot fracture [None]
  - Gastric operation [None]
  - Depression [None]
  - Blood glucose increased [None]
  - Infection [None]
  - Breast operation [None]
  - Eye infection [None]
  - Nausea [None]
  - Somnolence [None]
  - Gastrointestinal disorder [None]
